FAERS Safety Report 4720612-5 (Version None)
Quarter: 2005Q3

REPORT INFORMATION
  Report Type: 
  Country: None (occurrence: None)
  Receive Date: 20050719
  Receipt Date: 20050706
  Transmission Date: 20060218
  Serious: Yes (Hospitalization)
  Sender: FDA-Public Use
  Company Number: 2005BI012826

PATIENT
  Age: 43 Year
  Sex: Female

DRUGS (1)
  1. AVONEX [Suspect]
     Indication: MULTIPLE SCLEROSIS
     Dosage: 30 UG;QW;IM
     Route: 030
     Dates: start: 20001201

REACTIONS (7)
  - ACCIDENT [None]
  - CELLULITIS [None]
  - HAEMORRHAGE [None]
  - HIP FRACTURE [None]
  - INJURY [None]
  - PYREXIA [None]
  - STAPHYLOCOCCAL INFECTION [None]
